FAERS Safety Report 8841188 (Version 2)
Quarter: 2012Q4

REPORT INFORMATION
  Report Type: Report from Study
  Country: US (occurrence: US)
  Receive Date: 20121015
  Receipt Date: 20121213
  Transmission Date: 20130627
  Serious: Yes (Other)
  Sender: FDA-Public Use
  Company Number: US-US-EMD SERONO, INC.-7166875

PATIENT
  Sex: Female
  Weight: 86 kg

DRUGS (6)
  1. REBIF [Suspect]
     Indication: MULTIPLE SCLEROSIS
     Route: 058
     Dates: start: 20080123
  2. PRILOSEC [Concomitant]
     Indication: PRODUCT USED FOR UNKNOWN INDICATION
  3. KEPPRA [Concomitant]
     Indication: CONVULSION
  4. EFFEXOR [Concomitant]
     Indication: DEPRESSED MOOD
     Route: 048
  5. ZOCOR [Concomitant]
     Indication: BLOOD CHOLESTEROL INCREASED
  6. VESICARE [Concomitant]
     Indication: BLADDER DYSFUNCTION
     Route: 048

REACTIONS (2)
  - Ovarian cyst [Recovering/Resolving]
  - Hepatic enzyme increased [Unknown]
